FAERS Safety Report 18867659 (Version 2)
Quarter: 2021Q1

REPORT INFORMATION
  Report Type: Spontaneous
  Country: CA (occurrence: CA)
  Receive Date: 20210209
  Receipt Date: 20210318
  Transmission Date: 20210420
  Serious: Yes (Death, Hospitalization)
  Sender: FDA-Public Use
  Company Number: CA-DSJP-DSU-2021-103056

PATIENT
  Age: 83 Year
  Sex: Male

DRUGS (4)
  1. BISOPROLOL FUMARATE. [Suspect]
     Active Substance: BISOPROLOL FUMARATE
     Indication: PRODUCT USED FOR UNKNOWN INDICATION
     Dosage: 5 MG, QD
     Route: 065
  2. OCTREOTIDE. [Concomitant]
     Active Substance: OCTREOTIDE
     Indication: PRODUCT USED FOR UNKNOWN INDICATION
     Dosage: UNK,TOTAL
     Route: 065
  3. LIXIANA [Suspect]
     Active Substance: EDOXABAN TOSYLATE
     Indication: PRODUCT USED FOR UNKNOWN INDICATION
     Dosage: 30 MG, QD
     Route: 065
  4. SANDOSTATIN LAR DEPOT [Suspect]
     Active Substance: OCTREOTIDE ACETATE
     Indication: CARCINOID TUMOUR
     Dosage: 60 MG, ONCE EVERY 4 WK
     Route: 030

REACTIONS (10)
  - Blood pressure increased [Fatal]
  - Heart rate increased [Fatal]
  - Movement disorder [Fatal]
  - Blood pressure decreased [Fatal]
  - Death [Fatal]
  - Bacterial test positive [Fatal]
  - Injection site pain [Fatal]
  - Fatigue [Fatal]
  - Oedema [Fatal]
  - Pulmonary oedema [Fatal]
